FAERS Safety Report 25082423 (Version 1)
Quarter: 2025Q1

REPORT INFORMATION
  Report Type: Spontaneous
  Country: IN (occurrence: IN)
  Receive Date: 20250317
  Receipt Date: 20250317
  Transmission Date: 20250409
  Serious: Yes (Death, Other)
  Sender: STRIDES
  Company Number: IN-STRIDES ARCOLAB LIMITED-2025SP003306

PATIENT

DRUGS (28)
  1. PREDNISOLONE [Suspect]
     Active Substance: PREDNISOLONE
     Indication: B-cell lymphoma
     Route: 048
  2. PREDNISOLONE [Suspect]
     Active Substance: PREDNISOLONE
     Route: 048
  3. PREDNISOLONE [Suspect]
     Active Substance: PREDNISOLONE
     Route: 048
  4. METHOTREXATE [Suspect]
     Active Substance: METHOTREXATE
     Indication: B-cell lymphoma
     Route: 037
  5. METHOTREXATE [Suspect]
     Active Substance: METHOTREXATE
     Route: 037
  6. METHOTREXATE [Suspect]
     Active Substance: METHOTREXATE
     Route: 037
  7. METHOTREXATE [Suspect]
     Active Substance: METHOTREXATE
     Route: 037
  8. METHOTREXATE [Suspect]
     Active Substance: METHOTREXATE
     Route: 042
  9. METHOTREXATE [Suspect]
     Active Substance: METHOTREXATE
     Route: 042
  10. ADRIAMYCIN [Suspect]
     Active Substance: DOXORUBICIN HYDROCHLORIDE
     Indication: B-cell lymphoma
     Route: 042
  11. ADRIAMYCIN [Suspect]
     Active Substance: DOXORUBICIN HYDROCHLORIDE
     Route: 042
  12. RITUXIMAB [Suspect]
     Active Substance: RITUXIMAB
     Indication: B-cell lymphoma
     Route: 042
  13. ONCOVIN [Suspect]
     Active Substance: VINCRISTINE SULFATE
     Indication: B-cell lymphoma
     Route: 042
  14. ONCOVIN [Suspect]
     Active Substance: VINCRISTINE SULFATE
     Route: 042
  15. ONCOVIN [Suspect]
     Active Substance: VINCRISTINE SULFATE
     Route: 042
  16. HYDROCORTISONE [Suspect]
     Active Substance: HYDROCORTISONE
     Indication: B-cell lymphoma
     Route: 037
  17. HYDROCORTISONE [Suspect]
     Active Substance: HYDROCORTISONE
     Route: 037
  18. HYDROCORTISONE [Suspect]
     Active Substance: HYDROCORTISONE
     Route: 037
  19. HYDROCORTISONE [Suspect]
     Active Substance: HYDROCORTISONE
     Route: 037
  20. LEUCOVORIN [Suspect]
     Active Substance: LEUCOVORIN\LEUCOVORIN CALCIUM
     Indication: B-cell lymphoma
     Route: 042
  21. LEUCOVORIN [Suspect]
     Active Substance: LEUCOVORIN\LEUCOVORIN CALCIUM
     Route: 042
  22. LEUCOVORIN [Suspect]
     Active Substance: LEUCOVORIN\LEUCOVORIN CALCIUM
     Route: 048
  23. CYTARABINE [Suspect]
     Active Substance: CYTARABINE
     Indication: B-cell lymphoma
     Route: 065
  24. CYTARABINE [Suspect]
     Active Substance: CYTARABINE
     Route: 037
  25. CYTARABINE [Suspect]
     Active Substance: CYTARABINE
     Route: 037
  26. CYCLOPHOSPHAMIDE [Suspect]
     Active Substance: CYCLOPHOSPHAMIDE
     Indication: B-cell lymphoma
     Route: 042
  27. CYCLOPHOSPHAMIDE [Suspect]
     Active Substance: CYCLOPHOSPHAMIDE
     Route: 042
  28. CYCLOPHOSPHAMIDE [Suspect]
     Active Substance: CYCLOPHOSPHAMIDE
     Route: 042

REACTIONS (1)
  - Disease progression [Fatal]
